FAERS Safety Report 23419057 (Version 1)
Quarter: 2024Q1

REPORT INFORMATION
  Report Type: Spontaneous
  Country: US (occurrence: US)
  Receive Date: 20240118
  Receipt Date: 20240118
  Transmission Date: 20240410
  Serious: No
  Sender: FDA-Public Use
  Company Number: US-LEX-000112

PATIENT
  Age: 72 Year
  Sex: Male

DRUGS (2)
  1. INPEFA [Suspect]
     Active Substance: SOTAGLIFLOZIN
     Indication: Cardiac failure congestive
     Dosage: STOPPED TAKING ONLY A WEEK ABOUT THE END OF OCTOBER OR 1ST OF NOVEMBER AND WENT BACK ON INPEFA ME...
     Route: 048
     Dates: start: 20231005
  2. INPEFA [Suspect]
     Active Substance: SOTAGLIFLOZIN
     Indication: Cardiac failure congestive
     Dosage: STARTED BREAKING INPEFA MEDICATION IN HALF
     Route: 048

REACTIONS (2)
  - Headache [Recovered/Resolved]
  - Wrong technique in product usage process [Unknown]

NARRATIVE: CASE EVENT DATE: 20231015
